FAERS Safety Report 4883535-7 (Version None)
Quarter: 2006Q1

REPORT INFORMATION
  Report Type: 
  Country: None (occurrence: None)
  Receive Date: 20060118
  Receipt Date: 20051220
  Transmission Date: 20060701
  Serious: Yes (Hospitalization, Disabling)
  Sender: FDA-Public Use
  Company Number: US-MERCK-0512USA03300

PATIENT
  Age: 60 Year
  Sex: Female
  Weight: 75 kg

DRUGS (4)
  1. VIOXX [Suspect]
     Indication: POLYARTHRITIS
     Route: 048
     Dates: start: 20030612, end: 20040427
  2. PAXIL [Concomitant]
     Route: 048
  3. SYNTHROID [Concomitant]
     Route: 048
  4. ASPIRIN [Concomitant]
     Route: 048

REACTIONS (8)
  - AORTIC VALVE INCOMPETENCE [None]
  - ASTHMA [None]
  - BRONCHITIS CHRONIC [None]
  - BRONCHOSPASM [None]
  - CHEST PAIN [None]
  - INTERVERTEBRAL DISC PROTRUSION [None]
  - RHINITIS ALLERGIC [None]
  - VENTRICULAR DYSFUNCTION [None]
